FAERS Safety Report 10573094 (Version 1)
Quarter: 2014Q4

REPORT INFORMATION
  Report Type: Spontaneous
  Country: AU (occurrence: None)
  Receive Date: 20141106
  Receipt Date: 20141106
  Transmission Date: 20150529
  Serious: Yes (Other)
  Sender: FDA-Public Use
  Company Number: 2014-20629

PATIENT
  Sex: Female

DRUGS (1)
  1. EYLEA [Suspect]
     Active Substance: AFLIBERCEPT
     Indication: NEOVASCULAR AGE-RELATED MACULAR DEGENERATION
     Route: 031
     Dates: start: 20140315, end: 20140315

REACTIONS (4)
  - Disorientation [None]
  - Somnolence [None]
  - Cerebrovascular accident [None]
  - Loss of consciousness [None]

NARRATIVE: CASE EVENT DATE: 20141021
